FAERS Safety Report 10677468 (Version 1)
Quarter: 2014Q4

REPORT INFORMATION
  Report Type: Report from Study
  Country: BR (occurrence: BR)
  Receive Date: 20141227
  Receipt Date: 20141227
  Transmission Date: 20150529
  Serious: Yes (Hospitalization, Other)
  Sender: FDA-Public Use
  Company Number: BR-ABBVIE-14K-020-1324741-00

PATIENT
  Age: 34 Year
  Sex: Female
  Weight: 62 kg

DRUGS (4)
  1. HUMIRA [Suspect]
     Active Substance: ADALIMUMAB
     Route: 058
     Dates: start: 2014, end: 20141007
  2. LAMITOR [Concomitant]
     Active Substance: LAMOTRIGINE
     Indication: SEIZURE
  3. DEPACON [Concomitant]
     Active Substance: VALPROATE SODIUM
     Indication: SEIZURE
  4. HUMIRA [Suspect]
     Active Substance: ADALIMUMAB
     Indication: CROHN^S DISEASE
     Route: 058
     Dates: start: 20140714, end: 20140714

REACTIONS (4)
  - Pneumonia [Recovered/Resolved]
  - Infection [Recovered/Resolved]
  - Depression [Recovered/Resolved]
  - Pleural disorder [Unknown]

NARRATIVE: CASE EVENT DATE: 201408
